FAERS Safety Report 8264969-X (Version None)
Quarter: 2012Q2

REPORT INFORMATION
  Report Type: 
  Country: None (occurrence: None)
  Receive Date: 20120406
  Receipt Date: 20120328
  Transmission Date: 20120825
  Serious: Yes (Death, Hospitalization)
  Sender: FDA-Public Use
  Company Number: HK-SANOFI-AVENTIS-2012SA021990

PATIENT
  Age: 72 Year
  Sex: Female

DRUGS (1)
  1. DRONEDARONE HCL [Suspect]
     Route: 065

REACTIONS (3)
  - DYSPNOEA [None]
  - ORGANISING PNEUMONIA [None]
  - RESPIRATORY FAILURE [None]
